FAERS Safety Report 15412082 (Version 2)
Quarter: 2018Q3

REPORT INFORMATION
  Report Type: Spontaneous
  Country: US (occurrence: US)
  Receive Date: 20180921
  Receipt Date: 20180921
  Transmission Date: 20181010
  Serious: No
  Sender: FDA-Public Use
  Company Number: US-RECKITT BENCKISER HEALTHCARE INT LIMITED-RB-96325-2017

PATIENT
  Sex: Male

DRUGS (3)
  1. TYLENOL [Concomitant]
     Active Substance: ACETAMINOPHEN
     Indication: PRODUCT USED FOR UNKNOWN INDICATION
     Dosage: UNK
     Route: 065
  2. MUCINEX MAXIMUM STRENGTH [Suspect]
     Active Substance: GUAIFENESIN
     Indication: PRODUCT USED FOR UNKNOWN INDICATION
     Dosage: UNK, FREQUENCY OF USE: TWICE, AMOUNT USED: 2, 1ST DOSE AT ABOUT 6:30 AM AND SECOND DOSE AT 09:40 AM
     Route: 065
     Dates: start: 20170817
  3. MUCINEX MAXIMUM STRENGTH [Suspect]
     Active Substance: GUAIFENESIN
     Dosage: UNK, FREQUENCY OF USE: TWICE, AMOUNT USED: 2, 1ST DOSE AT ABOUT 6:30 AM AND SECOND DOSE AT 09:40 AM
     Route: 065
     Dates: start: 20170817

REACTIONS (1)
  - Incorrect drug administration duration [Unknown]
